FAERS Safety Report 8389348-6 (Version None)
Quarter: 2012Q2

REPORT INFORMATION
  Report Type: 
  Country: None (occurrence: None)
  Receive Date: 20120528
  Receipt Date: 20120521
  Transmission Date: 20120825
  Serious: Yes (Other)
  Sender: FDA-Public Use
  Company Number: IL-AMGEN-ISRCT2012032269

PATIENT
  Age: 51 Year
  Sex: Female

DRUGS (7)
  1. HUMALOG [Concomitant]
  2. AVASTIN [Concomitant]
     Dosage: 1260 MG, Q3WK
     Dates: start: 20091026, end: 20110822
  3. DENOSUMAB [Suspect]
     Indication: METASTASES TO BONE
     Dosage: UNK UNK, Q4WK
     Route: 058
     Dates: start: 20090721, end: 20110801
  4. ANALGESICS [Concomitant]
  5. XELODA [Concomitant]
     Dosage: 350 MG, Q3WK
     Dates: start: 20110614, end: 20110808
  6. OSTINE [Concomitant]
  7. AUGMENTIN '125' [Concomitant]
     Dosage: 875 MG, BID
     Dates: start: 20101205

REACTIONS (2)
  - PAIN IN JAW [None]
  - OSTEONECROSIS OF JAW [None]
